FAERS Safety Report 4874315-7 (Version None)
Quarter: 2006Q1

REPORT INFORMATION
  Report Type: 
  Country: None (occurrence: None)
  Receive Date: 20060106
  Receipt Date: 20051227
  Transmission Date: 20060701
  Serious: Yes (Death, Other)
  Sender: FDA-Public Use
  Company Number: US-MERCK-0512USA03893

PATIENT
  Age: 57 Year
  Sex: Male

DRUGS (5)
  1. PRIMAXIN [Suspect]
     Route: 042
  2. AMIKACIN [Suspect]
     Route: 042
  3. AMIKACIN [Suspect]
     Route: 051
  4. AMIKACIN [Suspect]
     Route: 042
  5. COLISTIN [Suspect]
     Route: 042

REACTIONS (6)
  - BLOOD CREATININE INCREASED [None]
  - DEATH [None]
  - DRUG INEFFECTIVE [None]
  - HYDROCEPHALUS [None]
  - MENINGITIS [None]
  - PATHOGEN RESISTANCE [None]
